FAERS Safety Report 7554972-7 (Version None)
Quarter: 2011Q2

REPORT INFORMATION
  Report Type: 
  Country: None (occurrence: None)
  Receive Date: 20110617
  Receipt Date: 20110606
  Transmission Date: 20111010
  Serious: Yes (Hospitalization)
  Sender: FDA-Public Use
  Company Number: CA-JNJFOC-20110603156

PATIENT
  Sex: Female
  Weight: 103 kg

DRUGS (2)
  1. USTEKINUMAB [Suspect]
     Indication: PUSTULAR PSORIASIS
     Route: 058
     Dates: start: 20110512
  2. USTEKINUMAB [Suspect]
     Route: 058
     Dates: start: 20101221

REACTIONS (2)
  - PNEUMONIA [None]
  - FOOT FRACTURE [None]
